FAERS Safety Report 25334341 (Version 2)
Quarter: 2025Q3

REPORT INFORMATION
  Report Type: Spontaneous
  Country: US (occurrence: US)
  Receive Date: 20250520
  Receipt Date: 20250816
  Transmission Date: 20251021
  Serious: No
  Sender: ALEXION PHARMACEUTICALS
  Company Number: US-AstraZeneca-CH-00872089AP

PATIENT
  Sex: Male

DRUGS (1)
  1. BREZTRI [Suspect]
     Active Substance: BUDESONIDE\FORMOTEROL\GLYCOPYRROLATE

REACTIONS (8)
  - Chronic obstructive pulmonary disease [Unknown]
  - Product use issue [Unknown]
  - Device delivery system issue [Unknown]
  - Incorrect dose administered [Unknown]
  - Device use issue [Unknown]
  - Extra dose administered [Unknown]
  - Wrong technique in product usage process [Unknown]
  - Dyspnoea [Unknown]
